FAERS Safety Report 23956574 (Version 1)
Quarter: 2024Q2

REPORT INFORMATION
  Report Type: Spontaneous
  Country: JP (occurrence: JP)
  Receive Date: 20240610
  Receipt Date: 20240610
  Transmission Date: 20240715
  Serious: Yes (Hospitalization)
  Sender: FDA-Public Use
  Company Number: JP-CHUGAI-2024018763AA

PATIENT
  Age: 62 Year
  Sex: Male
  Weight: 97 kg

DRUGS (5)
  1. TECENTRIQ [Suspect]
     Active Substance: ATEZOLIZUMAB
     Indication: Lung adenocarcinoma
     Dosage: 1200 MILLIGRAM, QD
     Route: 065
     Dates: start: 20240229, end: 20240423
  2. PIPERACILLIN SODIUM\TAZOBACTAM SODIUM [Suspect]
     Active Substance: PIPERACILLIN SODIUM\TAZOBACTAM SODIUM
     Indication: Bacteraemia
     Dosage: 4.5 GRAM, TID
     Route: 065
     Dates: start: 20240308, end: 20240311
  3. CARBOPLATIN [Concomitant]
     Active Substance: CARBOPLATIN
     Indication: Lung adenocarcinoma
     Dosage: UNK
     Dates: start: 20240229, end: 20240521
  4. PACLITAXEL [Concomitant]
     Active Substance: PACLITAXEL
     Indication: Lung adenocarcinoma
     Dosage: UNK
     Dates: start: 20240229, end: 20240521
  5. BEVACIZUMAB BIOSIMILAR 2 [Concomitant]
     Indication: Lung adenocarcinoma
     Dosage: UNK
     Dates: start: 20240229, end: 20240521

REACTIONS (2)
  - Erythema multiforme [Recovering/Resolving]
  - Bacteraemia [Unknown]

NARRATIVE: CASE EVENT DATE: 20240308
